FAERS Safety Report 16437178 (Version 1)
Quarter: 2019Q2

REPORT INFORMATION
  Report Type: Spontaneous
  Country: FR (occurrence: FR)
  Receive Date: 20190615
  Receipt Date: 20190615
  Transmission Date: 20190711
  Serious: Yes (Hospitalization, Other)
  Sender: FDA-Public Use
  Company Number: FR-AUROBINDO-AUR-APL-2019-033551

PATIENT

DRUGS (1)
  1. RALOXIFENE. [Suspect]
     Active Substance: RALOXIFENE
     Indication: BREAST NEOPLASM
     Dosage: 1 DOSAGE FORM, DAILY
     Route: 048

REACTIONS (1)
  - Ventricular hypokinesia [Not Recovered/Not Resolved]

NARRATIVE: CASE EVENT DATE: 201809
